FAERS Safety Report 22860444 (Version 2)
Quarter: 2023Q4

REPORT INFORMATION
  Report Type: Spontaneous
  Country: GB (occurrence: GB)
  Receive Date: 20230824
  Receipt Date: 20231017
  Transmission Date: 20240110
  Serious: Yes (Hospitalization, Other)
  Sender: FDA-Public Use
  Company Number: GB-AstraZeneca-2023A179915

PATIENT
  Age: 75 Year
  Sex: Female
  Weight: 75 kg

DRUGS (15)
  1. PALBOCICLIB [Suspect]
     Active Substance: PALBOCICLIB
     Indication: Breast cancer
     Dosage: 125 MG
     Route: 048
     Dates: start: 20230705, end: 20230726
  2. PALBOCICLIB [Suspect]
     Active Substance: PALBOCICLIB
     Dosage: 125 MG
     Route: 048
     Dates: start: 20230607, end: 20230627
  3. CAMIZESTRANT [Suspect]
     Active Substance: CAMIZESTRANT
     Indication: Breast cancer
     Dosage: 75 MG
     Route: 048
     Dates: start: 20230607, end: 20230704
  4. CAMIZESTRANT [Suspect]
     Active Substance: CAMIZESTRANT
     Dosage: 75 MG
     Route: 048
     Dates: start: 20230705
  5. ORAMORPH SR SUSTAINED RELEASE [Suspect]
     Active Substance: MORPHINE SULFATE
     Dosage: UNK
  6. PLACEBO [Suspect]
     Active Substance: UNSPECIFIED INGREDIENT
     Indication: Breast cancer
     Dosage: 1 MG
     Route: 048
     Dates: start: 20230607, end: 20230704
  7. PLACEBO [Suspect]
     Active Substance: UNSPECIFIED INGREDIENT
     Dosage: 1 MG
     Route: 048
     Dates: start: 20230705, end: 20230725
  8. MORPHINE SULFATE [Suspect]
     Active Substance: MORPHINE SULFATE
     Dosage: UNK
  9. NITROGLYCERIN [Concomitant]
     Active Substance: NITROGLYCERIN
     Indication: Angina pectoris
     Dosage: AS NECESSARY
     Route: 060
     Dates: start: 20230228
  10. LAMOTRIGINE [Concomitant]
     Active Substance: LAMOTRIGINE
     Dosage: 200 MG
     Route: 048
     Dates: start: 2010
  11. GONADORELIN DIACETATE TETRAHYDRATE [Concomitant]
     Active Substance: GONADORELIN DIACETATE TETRAHYDRATE
     Dosage: UNK
  12. MOMETASONE [Concomitant]
     Active Substance: MOMETASONE
     Dosage: 10 MG
     Route: 048
     Dates: start: 20230316
  13. OXYCODONE HYDROCHLORIDE [Concomitant]
     Active Substance: OXYCODONE HYDROCHLORIDE
     Indication: Pain
     Dosage: 10 MG
     Route: 048
     Dates: start: 20230804
  14. SENNA LEAF [Concomitant]
     Active Substance: SENNA LEAF
     Indication: Constipation
     Dosage: 20 MG
     Route: 048
     Dates: start: 20230621
  15. SIMVASTATIN [Concomitant]
     Active Substance: SIMVASTATIN
     Indication: Hypercholesterolaemia
     Dosage: 20 MG
     Route: 048
     Dates: start: 20210429

REACTIONS (5)
  - Hallucination [Recovered/Resolved]
  - Confusional state [Recovered/Resolved]
  - Neutropenic sepsis [Recovered/Resolved]
  - White blood cell count decreased [Unknown]
  - Disorientation [Unknown]

NARRATIVE: CASE EVENT DATE: 20230725
